FAERS Safety Report 6132370-0 (Version None)
Quarter: 2009Q1

REPORT INFORMATION
  Report Type: 
  Country: None (occurrence: None)
  Receive Date: 20090325
  Receipt Date: 20090316
  Transmission Date: 20090719
  Serious: No
  Sender: FDA-Public Use
  Company Number: PHHY2009IT07453

PATIENT
  Sex: Male

DRUGS (4)
  1. EXJADE [Suspect]
     Indication: IRON OVERLOAD
     Dosage: 1000 MG DAILY
     Route: 048
     Dates: start: 20071101
  2. EXJADE [Suspect]
     Indication: HAEMOSIDEROSIS
  3. ZOMETA [Concomitant]
     Indication: OSTEOPOROSIS
     Dosage: 4 MG
     Route: 042
     Dates: start: 20080901
  4. ASPIRIN [Concomitant]
     Dosage: 100 MG
     Route: 048
     Dates: start: 20080901

REACTIONS (1)
  - HAEMATURIA [None]
